FAERS Safety Report 20933293 (Version 1)
Quarter: 2022Q2

REPORT INFORMATION
  Report Type: Spontaneous
  Country: FR (occurrence: FR)
  Receive Date: 20220608
  Receipt Date: 20220608
  Transmission Date: 20220721
  Serious: Yes (Hospitalization)
  Sender: FDA-Public Use
  Company Number: None

PATIENT
  Age: 71 Year
  Sex: Male

DRUGS (22)
  1. PYGEUM [Suspect]
     Active Substance: PYGEUM
     Indication: Prostatomegaly
     Dosage: 50 MILLIGRAM, BID
     Route: 048
  2. SOLIFENACIN [Suspect]
     Active Substance: SOLIFENACIN
     Indication: Prostatomegaly
     Dosage: 5 MILLIGRAM, QD
     Route: 048
  3. MANIDIPINE [Suspect]
     Active Substance: MANIDIPINE
     Indication: Hypertension
     Dosage: 20 MILLIGRAM, QD
     Route: 048
  4. ALLOPURINOL [Suspect]
     Active Substance: ALLOPURINOL
     Indication: Gout
     Dosage: UNK(NON RENSEIGNEE)
     Route: 048
     Dates: start: 201804, end: 20190301
  5. ALLOPURINOL [Suspect]
     Active Substance: ALLOPURINOL
     Dosage: UNK
     Route: 048
  6. MIRTAZAPINE [Suspect]
     Active Substance: MIRTAZAPINE
     Indication: Depression
     Dosage: 150 MILLIGRAM, PM, (15 MG, TWO IN THE EVENING)
     Route: 048
  7. VENLAFAXINE [Suspect]
     Active Substance: VENLAFAXINE HYDROCHLORIDE
     Indication: Depression
     Dosage: 150 MILLIGRAM, QD
     Route: 048
  8. TOUJEO [Suspect]
     Active Substance: INSULIN GLARGINE
     Indication: Type 2 diabetes mellitus
     Dosage: UNK
     Route: 058
  9. NOVORAPID [Suspect]
     Active Substance: INSULIN ASPART
     Indication: Type 2 diabetes mellitus
     Dosage: UNK
     Route: 058
  10. INDAPAMIDE\PERINDOPRIL [Suspect]
     Active Substance: INDAPAMIDE\PERINDOPRIL
     Indication: Hypertension
     Dosage: UNK(NON RENSEIGNEE)
     Route: 048
     Dates: start: 201702
  11. INDAPAMIDE\PERINDOPRIL [Suspect]
     Active Substance: INDAPAMIDE\PERINDOPRIL
     Dosage: UNK UNK, QD
     Route: 048
  12. INDAPAMIDE\PERINDOPRIL [Suspect]
     Active Substance: INDAPAMIDE\PERINDOPRIL
     Dosage: UNK 1X/J
     Route: 048
  13. CHOLESTYRAMINE [Suspect]
     Active Substance: CHOLESTYRAMINE
     Indication: Hypertriglyceridaemia
     Dosage: 4 GRAM, TID
     Route: 048
  14. COLCHICINE [Suspect]
     Active Substance: COLCHICINE
     Indication: Gout
     Dosage: UNK, QD
     Route: 048
  15. HYQVIA [Suspect]
     Active Substance: HUMAN IMMUNOGLOBULIN G\HYALURONIDASE RECOMBINANT HUMAN
     Indication: Product used for unknown indication
     Dosage: UNK(NON RENSEIGNEE)
     Route: 058
     Dates: start: 201703
  16. MANIDIPINE [Suspect]
     Active Substance: MANIDIPINE
     Indication: Hypertension
     Dosage: UNK(NON RENSEIGNEE)
     Route: 048
     Dates: start: 201202
  17. EZETIMIBE\SIMVASTATIN [Suspect]
     Active Substance: EZETIMIBE\SIMVASTATIN
     Indication: Hypertriglyceridaemia
     Dosage: 10 MILLIGRAM, QD
     Route: 048
  18. JANUVIA [Concomitant]
     Active Substance: SITAGLIPTIN PHOSPHATE
     Dosage: UNK
  19. GLICLAZIDE [Concomitant]
     Active Substance: GLICLAZIDE
     Dosage: UNK
  20. METFORMIN HYDROCHLORIDE [Concomitant]
     Active Substance: METFORMIN HYDROCHLORIDE
     Dosage: UNK
  21. SIMVASTATIN [Concomitant]
     Active Substance: SIMVASTATIN
     Dosage: UNK
  22. LAUROMACROGOL [Concomitant]
     Indication: Constipation
     Dosage: UNK, IF NEEDED
     Route: 048

REACTIONS (4)
  - Thrombocytopenia [Not Recovered/Not Resolved]
  - Anaemia [Not Recovered/Not Resolved]
  - Eczema [Recovering/Resolving]
  - Pruritus [Not Recovered/Not Resolved]

NARRATIVE: CASE EVENT DATE: 20181201
